FAERS Safety Report 24579623 (Version 2)
Quarter: 2024Q4

REPORT INFORMATION
  Report Type: Spontaneous
  Country: AT (occurrence: AT)
  Receive Date: 20241105
  Receipt Date: 20241211
  Transmission Date: 20250114
  Serious: Yes (Other)
  Sender: Unknown Manufacturer
  Company Number: AT-ROCHE-10000080891

PATIENT
  Age: 59 Year
  Sex: Male

DRUGS (9)
  1. GEMCITABINE [Suspect]
     Active Substance: GEMCITABINE
     Indication: Diffuse large B-cell lymphoma
     Dosage: CYCLE II, D1
     Route: 042
     Dates: start: 20240805
  2. GEMCITABINE [Suspect]
     Active Substance: GEMCITABINE
     Dosage: CYCLE 1, D2
     Route: 042
     Dates: start: 20240705
  3. OXALIPLATIN [Suspect]
     Active Substance: OXALIPLATIN
     Indication: Diffuse large B-cell lymphoma
     Dosage: CYCLE I, D2
     Route: 042
     Dates: start: 20240705
  4. OXALIPLATIN [Suspect]
     Active Substance: OXALIPLATIN
     Dosage: CYCLE II, D1
     Route: 042
     Dates: start: 20240805
  5. COLUMVI [Suspect]
     Active Substance: GLOFITAMAB-GXBM
     Indication: Diffuse large B-cell lymphoma
     Dosage: CYCLE- I, D25
     Route: 042
     Dates: start: 20240705
  6. COLUMVI [Suspect]
     Active Substance: GLOFITAMAB-GXBM
     Dosage: CYCLE II, D1
     Route: 042
     Dates: start: 20240805
  7. COLUMVI [Suspect]
     Active Substance: GLOFITAMAB-GXBM
     Dosage: CYCLE I, D18
     Route: 042
     Dates: start: 20240705
  8. OBINUTUZUMAB [Suspect]
     Active Substance: OBINUTUZUMAB
     Indication: Diffuse large B-cell lymphoma
     Dosage: CYCLE-II D11
     Route: 042
     Dates: start: 20240805
  9. OBINUTUZUMAB [Suspect]
     Active Substance: OBINUTUZUMAB
     Dosage: CYCLE I, D1
     Route: 042
     Dates: start: 20240705

REACTIONS (2)
  - Metastases to meninges [Unknown]
  - Off label use [Unknown]
